FAERS Safety Report 10412698 (Version 2)
Quarter: 2014Q3

REPORT INFORMATION
  Report Type: Spontaneous
  Country: US (occurrence: US)
  Receive Date: 20140827
  Receipt Date: 20140827
  Transmission Date: 20150326
  Serious: Yes (Other)
  Sender: FDA-Public Use
  Company Number: US-RB PHARMACEUTICALS LIMITED-RB-67735-2014

PATIENT
  Age: 46 Year
  Sex: Female

DRUGS (5)
  1. BUPRENORPHINE NALOXONE GENERIC [Suspect]
     Active Substance: BUPRENORPHINE\NALOXONE
     Indication: DRUG DEPENDENCE
     Dosage: 8 MG, TID
     Route: 060
  2. BUPRENORPHINE NALOXONE GENERIC [Suspect]
     Active Substance: BUPRENORPHINE\NALOXONE
     Dosage: 1 MG, QD, OVER A PERIOD OF 2-3 MONTHS
     Route: 060
     Dates: end: 20140505
  3. CLONAZEPAM. [Concomitant]
     Active Substance: CLONAZEPAM
     Indication: ANXIETY
     Dosage: UNK
     Route: 065
  4. ZOLOFT [Concomitant]
     Active Substance: SERTRALINE HYDROCHLORIDE
     Indication: DEPRESSION
     Dosage: UNK
     Route: 065
  5. BUPRENORPHINE NALOXONE GENERIC [Suspect]
     Active Substance: BUPRENORPHINE\NALOXONE
     Dosage: 2 MG, UNK
     Route: 060

REACTIONS (11)
  - Anger [Unknown]
  - Fatigue [Unknown]
  - Insomnia [Recovered/Resolved]
  - Diarrhoea [Unknown]
  - Suicidal ideation [Recovered/Resolved]
  - Wrong technique in drug usage process [Recovered/Resolved]
  - Drug withdrawal syndrome [Unknown]
  - Weight decreased [Unknown]
  - Emotional disorder [Recovered/Resolved]
  - Psychomotor hyperactivity [Unknown]
  - Depression [Recovered/Resolved]

NARRATIVE: CASE EVENT DATE: 20140507
